FAERS Safety Report 14313388 (Version 4)
Quarter: 2018Q1

REPORT INFORMATION
  Report Type: Report from Study
  Country: CO (occurrence: CO)
  Receive Date: 20171221
  Receipt Date: 20180131
  Transmission Date: 20180509
  Serious: Yes (Death, Hospitalization)
  Sender: FDA-Public Use
  Company Number: CO-ACTELION-A-CH2017-157882

PATIENT
  Age: 16 Year
  Sex: Male
  Weight: 44 kg

DRUGS (3)
  1. OPSUMIT [Suspect]
     Active Substance: MACITENTAN
     Indication: PULMONARY ARTERIAL HYPERTENSION
     Dosage: 10 MG, QD
     Route: 048
     Dates: start: 20170705
  2. TREPROSTINIL [Concomitant]
     Active Substance: TREPROSTINIL
  3. SILDENAFIL. [Concomitant]
     Active Substance: SILDENAFIL
     Indication: PULMONARY ARTERIAL HYPERTENSION
     Dosage: 25 MG, UNK
     Route: 048

REACTIONS (4)
  - Pulmonary arterial hypertension [Recovered/Resolved]
  - Chest pain [Recovered/Resolved]
  - Death [Fatal]
  - Pain in extremity [Recovered/Resolved]

NARRATIVE: CASE EVENT DATE: 20170720
